FAERS Safety Report 8226324-8 (Version None)
Quarter: 2012Q1

REPORT INFORMATION
  Report Type: 
  Country: None (occurrence: None)
  Receive Date: 20120321
  Receipt Date: 20120308
  Transmission Date: 20120608
  Serious: Yes (Other)
  Sender: FDA-Public Use
  Company Number: JP-ROCHE-1047163

PATIENT
  Age: 72 Year
  Sex: Female

DRUGS (2)
  1. XELODA [Suspect]
     Indication: GASTRIC CANCER
     Dosage: DOSAGE IS UNCERTAIN.
     Route: 048
     Dates: start: 20120208, end: 20120307
  2. HERCEPTIN [Suspect]
     Indication: GASTRIC CANCER
     Route: 041
     Dates: start: 20120208, end: 20120307

REACTIONS (1)
  - SYNCOPE [None]
